FAERS Safety Report 4610496-8 (Version None)
Quarter: 2005Q1

REPORT INFORMATION
  Report Type: 
  Country: None (occurrence: None)
  Receive Date: 20050301
  Receipt Date: 20050121
  Transmission Date: 20050727
  Serious: No
  Sender: FDA-Public Use
  Company Number: WAES 0501USA03376

PATIENT
  Age: 82 Year
  Sex: Female
  Weight: 63.05 kg

DRUGS (11)
  1. ZETIA [Suspect]
     Dosage: 10 MG/ PO
     Route: 048
     Dates: start: 20030801, end: 20030901
  2. ZETIA [Suspect]
     Dosage: 10 MG PO
     Route: 048
     Dates: start: 20041101, end: 20041213
  3. AMBIEN [Concomitant]
  4. BETAGAN [Concomitant]
  5. CELEXA [Concomitant]
  6. CORDARONE [Concomitant]
  7. COUMADIN [Concomitant]
  8. DYAZIDE [Concomitant]
  9. GLUCOTROL XL [Concomitant]
  10. LEVOXYL [Concomitant]
  11. VICODIN [Concomitant]

REACTIONS (6)
  - ALANINE AMINOTRANSFERASE INCREASED [None]
  - ASPARTATE AMINOTRANSFERASE INCREASED [None]
  - ASTHENIA [None]
  - DYSSTASIA [None]
  - FATIGUE [None]
  - GAMMA-GLUTAMYLTRANSFERASE INCREASED [None]
